FAERS Safety Report 19771062 (Version 3)
Quarter: 2021Q3

REPORT INFORMATION
  Report Type: Spontaneous
  Country: CH (occurrence: CH)
  Receive Date: 20210831
  Receipt Date: 20210914
  Transmission Date: 20211014
  Serious: Yes (Other)
  Sender: FDA-Public Use
  Company Number: CH-UCBSA-2020049493

PATIENT
  Age: 30 Year
  Sex: Female

DRUGS (5)
  1. AZATHIOPRINE. [Concomitant]
     Active Substance: AZATHIOPRINE
     Indication: TAKAYASU^S ARTERITIS
     Dosage: UNK
     Dates: start: 201910
  2. ACTEMRA [Concomitant]
     Active Substance: TOCILIZUMAB
     Indication: TAKAYASU^S ARTERITIS
     Dosage: UNK
     Dates: start: 201311, end: 202010
  3. CIMZIA [Suspect]
     Active Substance: CERTOLIZUMAB PEGOL
     Indication: OFF LABEL USE
  4. CIMZIA [Suspect]
     Active Substance: CERTOLIZUMAB PEGOL
     Indication: TAKAYASU^S ARTERITIS
     Dosage: UNK
     Dates: start: 20201126, end: 202107
  5. ACTEMRA [Concomitant]
     Active Substance: TOCILIZUMAB
     Dosage: UNK
     Dates: start: 202108

REACTIONS (7)
  - Amniocentesis abnormal [Unknown]
  - Vasculitis [Recovered/Resolved]
  - Maternal exposure during pregnancy [Unknown]
  - Caesarean section [Unknown]
  - Off label use [Unknown]
  - Maternal exposure during breast feeding [Unknown]
  - Drug ineffective for unapproved indication [Unknown]

NARRATIVE: CASE EVENT DATE: 20201126
